FAERS Safety Report 17797195 (Version 1)
Quarter: 2020Q2

REPORT INFORMATION
  Report Type: Spontaneous
  Country: CH (occurrence: CH)
  Receive Date: 20200518
  Receipt Date: 20200518
  Transmission Date: 20200714
  Serious: Yes (Other)
  Sender: FDA-Public Use
  Company Number: CH-TEVA-2020-CH-1236671

PATIENT
  Age: 40 Year
  Sex: Female

DRUGS (4)
  1. EZETIMIBE. [Concomitant]
     Active Substance: EZETIMIBE
     Route: 065
  2. MOXIFLOXACIN. [Suspect]
     Active Substance: MOXIFLOXACIN
     Indication: ANTI-INFECTIVE THERAPY
     Route: 048
  3. DICLOFENAC [Concomitant]
     Active Substance: DICLOFENAC
     Route: 065
  4. RIVAROXABAN [Concomitant]
     Active Substance: RIVAROXABAN
     Route: 065

REACTIONS (1)
  - Hypoglycaemia [Recovered/Resolved]
